FAERS Safety Report 9888930 (Version 2)
Quarter: 2014Q1

REPORT INFORMATION
  Report Type: Spontaneous
  Country: JP (occurrence: JP)
  Receive Date: 20140211
  Receipt Date: 20140313
  Transmission Date: 20141002
  Serious: Yes (Other)
  Sender: FDA-Public Use
  Company Number: JP-GLAXOSMITHKLINE-B0956004A

PATIENT
  Age: 34 Year
  Sex: Female

DRUGS (10)
  1. ZEFIX 100 [Suspect]
     Indication: HEPATITIS B
     Dosage: 100MG TWICE PER DAY
     Route: 048
     Dates: start: 20131218, end: 20131225
  2. HEPSERA 10 [Suspect]
     Indication: PRODUCT USED FOR UNKNOWN INDICATION
     Route: 048
     Dates: start: 20131225
  3. PREDONINE [Concomitant]
     Indication: HEPATITIS B
     Dosage: 1G PER DAY
     Dates: start: 20131218, end: 20131220
  4. PREDONINE [Concomitant]
     Indication: HEPATITIS B
     Dosage: 30MG TWICE PER DAY
     Route: 048
     Dates: start: 20131221, end: 20131221
  5. PREDONINE [Concomitant]
     Indication: HEPATITIS B
     Route: 048
     Dates: start: 20131222, end: 20131222
  6. PREDONINE [Concomitant]
     Indication: HEPATITIS B
     Route: 048
     Dates: start: 20131223, end: 20131223
  7. URSO [Concomitant]
     Dosage: 200MG THREE TIMES PER DAY
     Route: 048
  8. PARIET [Concomitant]
     Dosage: 10MG PER DAY
     Route: 048
  9. BONALON [Concomitant]
     Route: 048
  10. DALACIN T [Concomitant]
     Route: 061

REACTIONS (3)
  - Platelet count decreased [Recovered/Resolved]
  - Arthralgia [Recovering/Resolving]
  - Folliculitis [Unknown]
